FAERS Safety Report 13856620 (Version 1)
Quarter: 2017Q3

REPORT INFORMATION
  Report Type: Spontaneous
  Country: US (occurrence: US)
  Receive Date: 20170810
  Receipt Date: 20170810
  Transmission Date: 20171127
  Serious: No
  Sender: FDA-Public Use
  Company Number: US-ROCHE-1345295

PATIENT
  Sex: Male

DRUGS (2)
  1. TAMIFLU [Suspect]
     Active Substance: OSELTAMIVIR PHOSPHATE
     Indication: INFLUENZA
     Route: 065
     Dates: end: 20140205
  2. ALAVERT ALLERGY [Concomitant]
     Active Substance: LORATADINE
     Route: 065

REACTIONS (1)
  - Vomiting [Recovered/Resolved]
